FAERS Safety Report 13576462 (Version 6)
Quarter: 2018Q1

REPORT INFORMATION
  Report Type: Report from Study
  Country: US (occurrence: US)
  Receive Date: 20170524
  Receipt Date: 20180104
  Transmission Date: 20180508
  Serious: Yes (Hospitalization, Other)
  Sender: FDA-Public Use
  Company Number: US-SA-2017SA093887

PATIENT
  Age: 53 Year
  Sex: Male

DRUGS (13)
  1. PREDNISONE. [Concomitant]
     Active Substance: PREDNISONE
  2. METOPROLOL. [Concomitant]
     Active Substance: METOPROLOL
  3. ANDROGEL [Concomitant]
     Active Substance: TESTOSTERONE
  4. TYLENOL [Concomitant]
     Active Substance: ACETAMINOPHEN
  5. MAGNESIUM [Concomitant]
     Active Substance: MAGNESIUM
  6. FABRAZYME [Suspect]
     Active Substance: AGALSIDASE BETA
     Indication: FABRY^S DISEASE
     Dosage: DOSE: 75.00 (UNITS NOT PROVIDED)?FREQUENCY: Q2
     Route: 041
     Dates: start: 20131226
  7. FABRAZYME [Suspect]
     Active Substance: AGALSIDASE BETA
     Indication: FABRY^S DISEASE
     Dosage: DOSE: 70.00 (UNITS NOT PROVIDED)?FREQUENCY: Q2
     Route: 041
     Dates: start: 20160411, end: 20170504
  8. FABRAZYME [Suspect]
     Active Substance: AGALSIDASE BETA
     Indication: FABRY^S DISEASE
     Dosage: DOSE: 75.00 (UNITS NOT PROVIDED)?FREQUENCY: Q2
     Route: 041
     Dates: start: 2017
  9. FOLIC ACID. [Concomitant]
     Active Substance: FOLIC ACID
  10. PRILOSEC [Concomitant]
     Active Substance: OMEPRAZOLE MAGNESIUM
  11. TACROLIMUS. [Concomitant]
     Active Substance: TACROLIMUS
  12. BENADRYL [Concomitant]
     Active Substance: DIPHENHYDRAMINE HYDROCHLORIDE
  13. WARFARIN [Concomitant]
     Active Substance: WARFARIN

REACTIONS (13)
  - Cardiac disorder [Unknown]
  - Fall [Not Recovered/Not Resolved]
  - Feeling cold [Not Recovered/Not Resolved]
  - Dyspnoea [Recovered/Resolved]
  - Tooth disorder [Recovering/Resolving]
  - Pain [Not Recovered/Not Resolved]
  - Infection [Not Recovered/Not Resolved]
  - Muscle spasms [Not Recovered/Not Resolved]
  - Atrial fibrillation [Unknown]
  - Lymphoedema [Not Recovered/Not Resolved]
  - Balance disorder [Not Recovered/Not Resolved]
  - Rib fracture [Not Recovered/Not Resolved]
  - Hypoacusis [Recovering/Resolving]

NARRATIVE: CASE EVENT DATE: 20170601
